FAERS Safety Report 10402840 (Version 1)
Quarter: 2014Q3

REPORT INFORMATION
  Report Type: Spontaneous
  Country: CA (occurrence: CA)
  Receive Date: 20140822
  Receipt Date: 20140822
  Transmission Date: 20150326
  Serious: Yes (Death, Hospitalization)
  Sender: FDA-Public Use
  Company Number: CA-BAXTER-2014BAX049045

PATIENT
  Age: 71 Year
  Sex: Male

DRUGS (1)
  1. DIANEAL W/ DEXTROSE 2.5% [Suspect]
     Active Substance: CALCIUM CHLORIDE\DEXTROSE\MAGNESIUM CHLORIDE\SODIUM CHLORIDE\SODIUM LACTATE
     Indication: PERITONEAL DIALYSIS
     Route: 033

REACTIONS (4)
  - Multimorbidity [Unknown]
  - Death [Fatal]
  - Cerebrovascular accident [Unknown]
  - Localised infection [Unknown]

NARRATIVE: CASE EVENT DATE: 20140702
